FAERS Safety Report 8011977-X (Version None)
Quarter: 2011Q4

REPORT INFORMATION
  Report Type: 
  Country: None (occurrence: None)
  Receive Date: 20111228
  Receipt Date: 20111222
  Transmission Date: 20120403
  Serious: Yes (Hospitalization)
  Sender: FDA-Public Use
  Company Number: CA-GLAXOSMITHKLINE-A0959019A

PATIENT
  Sex: Male

DRUGS (5)
  1. TIAZAC [Suspect]
     Indication: PRODUCT USED FOR UNKNOWN INDICATION
     Route: 065
  2. ASPIRIN [Concomitant]
     Indication: PRODUCT USED FOR UNKNOWN INDICATION
     Route: 065
  3. LORAZEPAM [Concomitant]
     Indication: PRODUCT USED FOR UNKNOWN INDICATION
     Route: 065
  4. NEXIUM [Concomitant]
     Indication: PRODUCT USED FOR UNKNOWN INDICATION
     Route: 065
  5. PAXIL [Suspect]
     Indication: ANXIETY
     Dosage: 20MG IN THE MORNING
     Route: 065
     Dates: start: 20111128

REACTIONS (4)
  - PAIN [None]
  - CHEST PAIN [None]
  - PALPITATIONS [None]
  - DRUG INTERACTION [None]
